FAERS Safety Report 4415856-6 (Version None)
Quarter: 2004Q3

REPORT INFORMATION
  Report Type: 
  Country: None (occurrence: None)
  Receive Date: 20040730
  Receipt Date: 20040727
  Transmission Date: 20050211
  Serious: Yes (Hospitalization)
  Sender: FDA-Public Use
  Company Number: 2004-03-1689

PATIENT
  Age: 71 Year
  Sex: Female
  Weight: 46 kg

DRUGS (6)
  1. REBETOL [Suspect]
     Indication: HEPATITIS C
     Dosage: 400 MG ORAL
     Route: 048
     Dates: start: 20031027, end: 20040322
  2. INTRON A [Suspect]
     Indication: HEPATITIS C
     Dosage: 3 MIU TID INTRAMUSCULAR
     Route: 030
     Dates: start: 20031027, end: 20040322
  3. URSO [Concomitant]
  4. DOGMATYL [Concomitant]
  5. INHIBACE [Concomitant]
  6. NEO-MINOPHAGEN C [Concomitant]

REACTIONS (3)
  - GRIP STRENGTH DECREASED [None]
  - THALAMUS HAEMORRHAGE [None]
  - TREMOR [None]
